FAERS Safety Report 20924121 (Version 1)
Quarter: 2022Q2

REPORT INFORMATION
  Report Type: Spontaneous
  Country: US (occurrence: None)
  Receive Date: 20220606
  Receipt Date: 20220606
  Transmission Date: 20220721
  Serious: No
  Sender: FDA-Public Use
  Company Number: None

PATIENT
  Age: 69 Year
  Sex: Female
  Weight: 78.75 kg

DRUGS (8)
  1. PAXLOVID [Suspect]
     Active Substance: NIRMATRELVIR\RITONAVIR
     Indication: COVID-19
     Dates: start: 20220517, end: 20220522
  2. NORVASC [Concomitant]
     Active Substance: AMLODIPINE BESYLATE
  3. VICTOZA [Concomitant]
     Active Substance: LIRAGLUTIDE
  4. ATORVASTATIN [Concomitant]
     Active Substance: ATORVASTATIN
  5. BUPROPION [Concomitant]
     Active Substance: BUPROPION
  6. FAMOTIDINE [Concomitant]
     Active Substance: FAMOTIDINE
  7. ASPIRIN [Concomitant]
     Active Substance: ASPIRIN
  8. COENZYME Q10 [Concomitant]
     Active Substance: DIETARY SUPPLEMENT\UBIDECARENONE

REACTIONS (2)
  - Cough [None]
  - Coronavirus test positive [None]

NARRATIVE: CASE EVENT DATE: 20220529
